FAERS Safety Report 13601544 (Version 4)
Quarter: 2018Q3

REPORT INFORMATION
  Report Type: Spontaneous
  Country: US (occurrence: US)
  Receive Date: 20170601
  Receipt Date: 20180718
  Transmission Date: 20181010
  Serious: Yes (Hospitalization)
  Sender: FDA-Public Use
  Company Number: US-GLAXOSMITHKLINE-US2017GSK083091

PATIENT
  Age: 40 Year
  Sex: Female
  Weight: 88.5 kg

DRUGS (26)
  1. TEMAZEPAM. [Concomitant]
     Active Substance: TEMAZEPAM
  2. FLOLAN [Suspect]
     Active Substance: EPOPROSTENOL SODIUM
     Dosage: 60 DF, CO
     Dates: start: 20110630
  3. PAXIL [Suspect]
     Active Substance: PAROXETINE HYDROCHLORIDE
     Indication: PRODUCT USED FOR UNKNOWN INDICATION
  4. OMEPRAZOLE. [Concomitant]
     Active Substance: OMEPRAZOLE
  5. SPIRONOLACTONE. [Concomitant]
     Active Substance: SPIRONOLACTONE
  6. FLOLAN [Suspect]
     Active Substance: EPOPROSTENOL SODIUM
     Dosage: 60 DF, CO
  7. FLOLAN DILUENT PH 12 [Suspect]
     Active Substance: GLYCINE\MANNITOL\SODIUM CHLORIDE
     Dosage: UNK
  8. ALPRAZOLAM. [Concomitant]
     Active Substance: ALPRAZOLAM
  9. OXYCODONE?ACETAMINOPHEN [Concomitant]
     Active Substance: ACETAMINOPHEN\OXYCODONE HYDROCHLORIDE
  10. VIIBRYD [Concomitant]
     Active Substance: VILAZODONE HYDROCHLORIDE
  11. ADCIRCA [Concomitant]
     Active Substance: TADALAFIL
  12. FUROSEMIDE. [Concomitant]
     Active Substance: FUROSEMIDE
  13. POTASSIUM CHLORIDE. [Concomitant]
     Active Substance: POTASSIUM CHLORIDE
  14. TORSEMIDE. [Concomitant]
     Active Substance: TORSEMIDE
  15. TADALAFIL [Suspect]
     Active Substance: TADALAFIL
     Indication: PRODUCT USED FOR UNKNOWN INDICATION
     Dosage: 40 MG, QD
     Route: 048
     Dates: start: 2011
  16. COUMADIN [Suspect]
     Active Substance: WARFARIN SODIUM
     Indication: PRODUCT USED FOR UNKNOWN INDICATION
     Dosage: UNK
     Dates: start: 200508, end: 201404
  17. FLOLAN [Suspect]
     Active Substance: EPOPROSTENOL SODIUM
     Indication: PULMONARY ARTERIAL HYPERTENSION
     Dosage: 60 DF, CO
     Dates: start: 200902
  18. FLUTICASONE. [Concomitant]
     Active Substance: FLUTICASONE
  19. METOCLOPRAMIDE. [Concomitant]
     Active Substance: METOCLOPRAMIDE
  20. METOLAZONE. [Concomitant]
     Active Substance: METOLAZONE
  21. FLOLAN DILUENT PH 12 [Suspect]
     Active Substance: GLYCINE\MANNITOL\SODIUM CHLORIDE
     Indication: PULMONARY ARTERIAL HYPERTENSION
     Dosage: UNK
  22. AMBRISENTAN [Suspect]
     Active Substance: AMBRISENTAN
     Indication: PRODUCT USED FOR UNKNOWN INDICATION
     Dosage: 10 MG, QD
     Route: 048
     Dates: start: 2011
  23. RANITIDINE HYDROCHLORIDE. [Concomitant]
     Active Substance: RANITIDINE HYDROCHLORIDE
  24. ONDANSETRON [Concomitant]
     Active Substance: ONDANSETRON
  25. VENLAFAXINE XL [Concomitant]
  26. LETAIRIS [Concomitant]
     Active Substance: AMBRISENTAN

REACTIONS (39)
  - Pyrexia [Unknown]
  - Swelling face [Unknown]
  - Sputum discoloured [Unknown]
  - Drooling [Unknown]
  - Back pain [Unknown]
  - Haematoma evacuation [Unknown]
  - Respiratory disorder [Unknown]
  - Paranasal sinus discomfort [Unknown]
  - Nodule [Unknown]
  - Rhinorrhoea [Unknown]
  - Dysphonia [Unknown]
  - Dyspnoea [Unknown]
  - Wheezing [Unknown]
  - Abdominal pain [Unknown]
  - Drug hypersensitivity [Unknown]
  - Vomiting [Not Recovered/Not Resolved]
  - Oropharyngeal pain [Unknown]
  - Nasal discharge discolouration [Unknown]
  - Headache [Unknown]
  - Ill-defined disorder [Unknown]
  - Dysphagia [Unknown]
  - Nasal turbinate abnormality [Unknown]
  - Nausea [Not Recovered/Not Resolved]
  - Dehydration [Not Recovered/Not Resolved]
  - Nasopharyngitis [Unknown]
  - Productive cough [Unknown]
  - Chest pain [Unknown]
  - Pelvic haematoma [Unknown]
  - Upper respiratory tract congestion [Unknown]
  - Asthenia [Unknown]
  - Complication associated with device [Unknown]
  - Lymphadenopathy [Unknown]
  - Ear discomfort [Unknown]
  - Chills [Unknown]
  - Appetite disorder [Unknown]
  - Influenza [Unknown]
  - Chest discomfort [Unknown]
  - Upper-airway cough syndrome [Unknown]
  - Skin discolouration [Unknown]

NARRATIVE: CASE EVENT DATE: 2014
